FAERS Safety Report 10410984 (Version 2)
Quarter: 2014Q3

REPORT INFORMATION
  Report Type: Spontaneous
  Country: US (occurrence: US)
  Receive Date: 20140826
  Receipt Date: 20140826
  Transmission Date: 20150326
  Serious: Yes (Death, Hospitalization, Other)
  Sender: FDA-Public Use
  Company Number: US-009507513-2009-189203-NL

PATIENT
  Sex: Female
  Weight: 69.4 kg

DRUGS (5)
  1. NUVARING [Suspect]
     Active Substance: ETHINYL ESTRADIOL\ETONOGESTREL
     Indication: CONTRACEPTION
     Dosage: CONTINUING: NA
     Route: 067
     Dates: start: 200601, end: 200709
  2. PROVENTIL [Concomitant]
     Active Substance: ALBUTEROL
     Indication: PRODUCT USED FOR UNKNOWN INDICATION
     Dosage: Q4H PRN
     Route: 055
     Dates: start: 20060723
  3. LEXAPRO [Concomitant]
     Active Substance: ESCITALOPRAM OXALATE
     Indication: DEPRESSION
     Dosage: 20 MG, UNK
  4. CIPROFLOXACIN. [Concomitant]
     Active Substance: CIPROFLOXACIN
     Indication: PRODUCT USED FOR UNKNOWN INDICATION
     Dosage: 50 MG, BID
     Route: 048
     Dates: start: 20070511
  5. BENZONATATE. [Concomitant]
     Active Substance: BENZONATATE
     Indication: PRODUCT USED FOR UNKNOWN INDICATION
     Dosage: TID PRN
     Route: 048
     Dates: start: 20060723

REACTIONS (9)
  - Vulvovaginal candidiasis [Unknown]
  - Urinary tract infection [Recovered/Resolved]
  - Hypoaesthesia [Unknown]
  - Pneumonia [Unknown]
  - Cerumen impaction [Recovered/Resolved]
  - Pulmonary embolism [Fatal]
  - Upper respiratory tract infection [Unknown]
  - Abdominal discomfort [Unknown]
  - Cardiac arrest [Unknown]

NARRATIVE: CASE EVENT DATE: 20060722
